FAERS Safety Report 12523386 (Version 1)
Quarter: 2016Q3

REPORT INFORMATION
  Report Type: Spontaneous
  Country: US (occurrence: US)
  Receive Date: 20160703
  Receipt Date: 20160703
  Transmission Date: 20161109
  Serious: No
  Sender: FDA-Public Use
  Company Number: US-ASTRAZENECA-2016SE61720

PATIENT
  Age: 24003 Day
  Sex: Female
  Weight: 62.6 kg

DRUGS (7)
  1. FASLODEX [Suspect]
     Active Substance: FULVESTRANT
     Route: 030
  2. LEXAPRO [Concomitant]
     Active Substance: ESCITALOPRAM OXALATE
     Indication: DEPRESSION
  3. AMOUR [Concomitant]
     Indication: THYROID DISORDER
     Dosage: 60.0MG UNKNOWN
  4. LEXAPRO [Concomitant]
     Active Substance: ESCITALOPRAM OXALATE
     Indication: ANXIETY
  5. ARIMIDEX [Suspect]
     Active Substance: ANASTROZOLE
     Route: 048
  6. FASLODEX [Suspect]
     Active Substance: FULVESTRANT
     Indication: ANTIOESTROGEN THERAPY
     Route: 030
     Dates: start: 20160531
  7. IBRANCE [Suspect]
     Active Substance: PALBOCICLIB
     Indication: NEOPLASM MALIGNANT
     Route: 048
     Dates: start: 20160531

REACTIONS (8)
  - Headache [Recovering/Resolving]
  - Menopause [Unknown]
  - Osteoporosis [Unknown]
  - Hypersensitivity [Unknown]
  - Feeling hot [Not Recovered/Not Resolved]
  - Nausea [Recovering/Resolving]
  - Irritability [Unknown]
  - Yawning [Recovering/Resolving]

NARRATIVE: CASE EVENT DATE: 20160601
